FAERS Safety Report 18790388 (Version 1)
Quarter: 2021Q1

REPORT INFORMATION
  Report Type: Spontaneous
  Country: HU (occurrence: HU)
  Receive Date: 20210126
  Receipt Date: 20210126
  Transmission Date: 20210419
  Serious: Yes (Other)
  Sender: FDA-Public Use
  Company Number: HU-PFIZER INC-2021032352

PATIENT
  Age: 58 Year
  Sex: Female

DRUGS (2)
  1. ROSUVASTATIN. [Concomitant]
     Active Substance: ROSUVASTATIN
     Indication: HYPERLIPIDAEMIA
     Dosage: 10 MG
  2. AMLODIPINE BESILATE [Suspect]
     Active Substance: AMLODIPINE BESYLATE
     Indication: HYPERTENSION
     Dosage: 5 MG, 2X/DAY (FOR 10 YEARS)

REACTIONS (3)
  - Dyspnoea [Recovered/Resolved]
  - Asphyxia [Recovered/Resolved]
  - Oedema peripheral [Recovered/Resolved]
